FAERS Safety Report 23887034 (Version 1)
Quarter: 2024Q2

REPORT INFORMATION
  Report Type: Report from Study
  Country: IN (occurrence: IN)
  Receive Date: 20240523
  Receipt Date: 20240523
  Transmission Date: 20240716
  Serious: Yes (Other)
  Sender: FDA-Public Use
  Company Number: IN-CIPLA LTD.-2024IN04816

PATIENT

DRUGS (5)
  1. METOPROLOL SUCCINATE [Suspect]
     Active Substance: METOPROLOL SUCCINATE
     Indication: Product used for unknown indication
     Dosage: DOSE USED 1 AND FREQUENCY 1
     Route: 048
  2. ROSEDAY A [Concomitant]
     Indication: Product used for unknown indication
     Dosage: UNK, 20
     Route: 065
  3. ESITOR FORTE [Concomitant]
     Indication: Product used for unknown indication
     Dosage: UNK
     Route: 065
  4. CLONAFIT [Concomitant]
     Indication: Product used for unknown indication
     Dosage: UNK
     Route: 065
  5. MONIT [MORNIFLUMATE] [Concomitant]
     Indication: Product used for unknown indication
     Dosage: UNK
     Route: 065

REACTIONS (1)
  - Drug ineffective [Not Recovered/Not Resolved]
